FAERS Safety Report 7322274 (Version 3)
Quarter: 2012Q4

REPORT INFORMATION
  Report Type: 
  Country: DE (occurrence: DE)
  Receive Date: 20100317
  Receipt Date: 20121109
  Transmission Date: 20130627
  Serious: Yes (Death, Hospitalization)
  Sender: FDA-Public Use
  Company Number: DE-RANBAXY-2010RR-32402

PATIENT
  Age: 60 Year
  Sex: Male
  Weight: 55 kg

DRUGS (2)
  1. PARACETAMOL [Suspect]
     Indication: VIRAL UPPER RESPIRATORY TRACT INFECTION
     Dosage: 500 mg, UNK
     Route: 048
     Dates: start: 20091230, end: 20100102
  2. DICLOFENAC [Suspect]
     Indication: LIMB DISCOMFORT
     Dosage: UNK
     Route: 054
     Dates: start: 20091231, end: 20091231

REACTIONS (4)
  - Hypersensitivity [Recovered/Resolved]
  - Headache [None]
  - Pyrexia [None]
  - Meningitis [None]
